FAERS Safety Report 21018361 (Version 1)
Quarter: 2022Q2

REPORT INFORMATION
  Report Type: Spontaneous
  Country: US (occurrence: None)
  Receive Date: 20220627
  Receipt Date: 20220627
  Transmission Date: 20220721
  Serious: No
  Sender: FDA-Public Use
  Company Number: None

PATIENT
  Age: 39 Year
  Sex: Male

DRUGS (1)
  1. TALTZ [Suspect]
     Active Substance: IXEKIZUMAB
     Indication: Pustular psoriasis
     Dosage: FREQUENCY : MONTHLY;?
     Route: 058
     Dates: start: 20211028

REACTIONS (2)
  - Ear infection fungal [None]
  - Ear pruritus [None]

NARRATIVE: CASE EVENT DATE: 20211201
